FAERS Safety Report 7378946-4 (Version None)
Quarter: 2011Q1

REPORT INFORMATION
  Report Type: 
  Country: None (occurrence: None)
  Receive Date: 20110328
  Receipt Date: 20110321
  Transmission Date: 20110831
  Serious: Yes (Hospitalization)
  Sender: FDA-Public Use
  Company Number: GXBR2010US01961

PATIENT
  Sex: Female
  Weight: 72.562 kg

DRUGS (14)
  1. CLONAZEPAM [Concomitant]
     Indication: ANXIETY
     Dosage: 1MG QHS PRN
  2. ORENCIA [Suspect]
     Indication: RHEUMATOID ARTHRITIS
     Dosage: UNK MG, QMO
     Route: 042
  3. TAMBOCOR [Concomitant]
     Indication: ATRIAL FLUTTER
     Dosage: 75 MG, BID
  4. METHOTREXATE SODIUM [Suspect]
     Indication: RHEUMATOID ARTHRITIS
     Dosage: 15 MG, QW
     Route: 058
  5. CYMBALTA [Concomitant]
     Indication: DEPRESSION
     Dosage: 90 MG, QD
  6. LORTAB [Concomitant]
     Dosage: 7.5MG HYDROCODONE + 500MG ACETAMINOPHEN
  7. METHOTREXATE SODIUM [Suspect]
     Dosage: 25 MG, QW
  8. ACETAMINOPHEN [Suspect]
     Dosage: 650MG Q6H PRN
  9. METOPROLOL SUCCINATE [Concomitant]
     Dosage: 100 MG, QD
  10. DILANTIN [Suspect]
     Indication: CONVULSION
     Dosage: 100MG QAM AND 300MG QPM
  11. FOLIC ACID [Concomitant]
     Indication: RHEUMATOID ARTHRITIS
     Dosage: 2 MG, QD
  12. IMITREX ^GLAXO WELLCOME^ [Concomitant]
     Dosage: 25MG QD PRN
  13. LYRICA [Concomitant]
     Dosage: 50 MG, BID
  14. MULTI-VITAMINS [Concomitant]
     Dosage: UNK

REACTIONS (14)
  - PRURITUS [None]
  - VOMITING [None]
  - CHROMATURIA [None]
  - DIARRHOEA [None]
  - PYREXIA [None]
  - STASIS SYNDROME [None]
  - CHILLS [None]
  - FAECES PALE [None]
  - LIVER INJURY [None]
  - HEPATITIS ACUTE [None]
  - ABDOMINAL PAIN UPPER [None]
  - NAUSEA [None]
  - RASH [None]
  - DECREASED APPETITE [None]
